FAERS Safety Report 15184518 (Version 1)
Quarter: 2018Q3

REPORT INFORMATION
  Report Type: Spontaneous
  Country: US (occurrence: US)
  Receive Date: 20180723
  Receipt Date: 20180723
  Transmission Date: 20181010
  Serious: No
  Sender: FDA-Public Use
  Company Number: US-AMGEN-USASP2018077331

PATIENT
  Age: 87 Year
  Sex: Female
  Weight: 68.9 kg

DRUGS (3)
  1. REPATHA [Suspect]
     Active Substance: EVOLOCUMAB
     Indication: CAROTID ARTERY OCCLUSION
  2. REPATHA [Suspect]
     Active Substance: EVOLOCUMAB
     Indication: STENOSIS
  3. REPATHA [Suspect]
     Active Substance: EVOLOCUMAB
     Indication: LIPIDS INCREASED
     Dosage: UNK, Q2WK
     Route: 058
     Dates: start: 20171004

REACTIONS (1)
  - Nasopharyngitis [Recovering/Resolving]
